FAERS Safety Report 16663866 (Version 1)
Quarter: 2019Q3

REPORT INFORMATION
  Report Type: Report from Study
  Country: IT (occurrence: IT)
  Receive Date: 20190802
  Receipt Date: 20190802
  Transmission Date: 20191004
  Serious: Yes (Other)
  Sender: FDA-Public Use
  Company Number: IT-TEVA-2019-IT-1086812

PATIENT
  Age: 67 Year
  Sex: Male

DRUGS (4)
  1. ZOMETA [Concomitant]
     Active Substance: ZOLEDRONIC ACID
     Indication: BONE NEOPLASM
     Route: 042
     Dates: start: 20180806, end: 20190625
  2. DOCETAXEL. [Suspect]
     Active Substance: DOCETAXEL
     Indication: NEOPLASM PROSTATE
     Dosage: 120MG
     Route: 042
     Dates: start: 20190614, end: 20190705
  3. CASODEX 50 MG COMPRESSE RIVESTITE CON FILM [Concomitant]
  4. ELIGARD 22,5 MG POLVERE E SOLVENTE PER SOLUZIONE INIETTABILE [Concomitant]

REACTIONS (4)
  - Anaphylactic reaction [Recovering/Resolving]
  - Trismus [Recovering/Resolving]
  - Dyspnoea [Recovering/Resolving]
  - Loss of consciousness [Recovering/Resolving]

NARRATIVE: CASE EVENT DATE: 20190705
